FAERS Safety Report 11515108 (Version 2)
Quarter: 2015Q3

REPORT INFORMATION
  Report Type: Spontaneous
  Country: TR (occurrence: TR)
  Receive Date: 20150916
  Receipt Date: 20150918
  Transmission Date: 20151125
  Serious: Yes (Other)
  Sender: FDA-Public Use
  Company Number: PHHY2015TR108633

PATIENT
  Age: 31 Year
  Sex: Female

DRUGS (3)
  1. DIGOXIN. [Suspect]
     Active Substance: DIGOXIN
     Indication: TACHYARRHYTHMIA
     Dosage: 1200 UG, (WAS GIVEN AS 0.40 MG/DOSE FOR 24 HOURS AT 8-HOUR INTERVALS)
     Route: 042
  2. SOTALOL. [Suspect]
     Active Substance: SOTALOL
     Indication: TACHYARRHYTHMIA
     Dosage: 160 MG, QD (2 DOSES)
     Route: 048
  3. DIGOXIN. [Suspect]
     Active Substance: DIGOXIN
     Dosage: 0.25 MG/DOSE, 2 DOSES
     Route: 048

REACTIONS (2)
  - Foetal death [Unknown]
  - Maternal exposure during delivery [Unknown]
